FAERS Safety Report 8397631-3 (Version None)
Quarter: 2012Q2

REPORT INFORMATION
  Report Type: 
  Country: None (occurrence: None)
  Receive Date: 20120529
  Receipt Date: 20120529
  Transmission Date: 20120825
  Serious: Yes (Other)
  Sender: FDA-Public Use
  Company Number: None

PATIENT
  Age: 37 Year
  Sex: Male

DRUGS (1)
  1. COPAXONE [Suspect]
     Indication: MULTIPLE SCLEROSIS
     Dosage: 20MG ONCE DAILY SQ
     Route: 058
     Dates: start: 20110711, end: 20120527

REACTIONS (6)
  - HYPOAESTHESIA [None]
  - NAUSEA [None]
  - DYSPNOEA [None]
  - HEADACHE [None]
  - PARAESTHESIA [None]
  - INJECTION RELATED REACTION [None]
